FAERS Safety Report 8036883-6 (Version None)
Quarter: 2012Q1

REPORT INFORMATION
  Report Type: 
  Country: None (occurrence: None)
  Receive Date: 20120111
  Receipt Date: 20120105
  Transmission Date: 20120608
  Serious: Yes (Hospitalization, Other)
  Sender: FDA-Public Use
  Company Number: US-PFIZER INC-2012004220

PATIENT
  Sex: Female

DRUGS (4)
  1. REVLIMID [Suspect]
     Indication: MULTIPLE MYELOMA
     Dosage: 25 MG, DAILY
     Route: 048
     Dates: start: 20110815, end: 20110910
  2. REVLIMID [Suspect]
     Dosage: 15 MG, DAILY
     Route: 048
     Dates: start: 20110920
  3. DECADRON [Concomitant]
     Dosage: 40 MG, WEEKLY
     Dates: start: 20110815
  4. PREMARIN [Suspect]
     Dosage: UNK

REACTIONS (5)
  - SKIN INDURATION [None]
  - RASH [None]
  - PULMONARY EMBOLISM [None]
  - VENOUS THROMBOSIS LIMB [None]
  - PRURITUS [None]
